FAERS Safety Report 6338507-2 (Version None)
Quarter: 2009Q3

REPORT INFORMATION
  Report Type: 
  Country: None (occurrence: None)
  Receive Date: 20090901
  Receipt Date: 20090821
  Transmission Date: 20100115
  Serious: Yes (Congenital Anomaly)
  Sender: FDA-Public Use
  Company Number: 2009SP021569

PATIENT
  Age: 1 Day
  Sex: Female
  Weight: 1.21 kg

DRUGS (2)
  1. PEG-INTRON [Suspect]
     Indication: DRUG EXPOSURE DURING PREGNANCY
     Dates: start: 20080910, end: 20090601
  2. RIBAVIRIN [Suspect]
     Indication: DRUG EXPOSURE DURING PREGNANCY
     Dates: start: 20080910, end: 20090601

REACTIONS (5)
  - CAESAREAN SECTION [None]
  - CEREBRAL VENTRICLE DILATATION [None]
  - MENINGOCELE [None]
  - PATERNAL DRUGS AFFECTING FOETUS [None]
  - SMALL FOR DATES BABY [None]
